FAERS Safety Report 9009864 (Version 1)
Quarter: 2013Q1

REPORT INFORMATION
  Report Type: Spontaneous
  Country: US (occurrence: US)
  Receive Date: 20130110
  Receipt Date: 20130110
  Transmission Date: 20140127
  Serious: Yes (Hospitalization)
  Sender: FDA-Public Use
  Company Number: US-009507513-1301USA002144

PATIENT
  Age: 50 Year
  Sex: Female

DRUGS (11)
  1. SINGULAIR [Suspect]
  2. ZOLPIDEM TARTRATE [Suspect]
     Indication: ASPERGILLUS INFECTION
  3. LYRICA [Suspect]
     Indication: ASTHMA
  4. DESLORATADINE [Suspect]
  5. DURAGESIC [Suspect]
  6. CANCIDAS [Suspect]
     Dosage: 50 MG, ONCE
  7. SYMBICORT [Suspect]
     Dosage: 2 PUFFS QD INHALATION
     Route: 055
  8. VFEND [Suspect]
     Dosage: 200 MG, UNK
     Route: 048
  9. ZOFRAN [Suspect]
  10. PAROXETINE HCL [Suspect]
  11. VENTOLIN (ALBUTEROL SULFATE) [Suspect]

REACTIONS (3)
  - Hypokalaemia [Unknown]
  - General physical health deterioration [Unknown]
  - Chest pain [Unknown]
